FAERS Safety Report 5109077-1 (Version None)
Quarter: 2006Q3

REPORT INFORMATION
  Report Type: 
  Country: None (occurrence: None)
  Receive Date: 20060920
  Receipt Date: 20060824
  Transmission Date: 20061208
  Serious: Yes (Death, Other)
  Sender: FDA-Public Use
  Company Number: PHEH2006US10937

PATIENT
  Age: 48 Year
  Sex: Male

DRUGS (16)
  1. SUTENT [Suspect]
     Indication: RENAL CELL CARCINOMA STAGE UNSPECIFIED
     Dosage: 50 MG, QD
     Dates: start: 20060301, end: 20060701
  2. ZOMETA [Suspect]
     Indication: HYPERCALCAEMIA
     Dosage: ^RECEIVED THREE DOSES^
     Dates: start: 20060228, end: 20060607
  3. SORAFENIB [Concomitant]
     Indication: RENAL CELL CARCINOMA STAGE UNSPECIFIED
     Dosage: 400 MG, BID
     Dates: start: 20060116, end: 20060201
  4. NEXIUM [Concomitant]
     Indication: GASTROOESOPHAGEAL REFLUX DISEASE
  5. PROCRIT [Concomitant]
     Indication: ANAEMIA
     Dosage: 40,000-60,000 (NOT SPECIFIED)
     Dates: start: 20050502, end: 20060625
  6. OXYCONTIN [Concomitant]
  7. ALOXI [Concomitant]
     Indication: ANTIEMETIC SUPPORTIVE CARE
     Dosage: 0.25 MG, UNK
     Dates: start: 20050502, end: 20050613
  8. ANZEMET [Concomitant]
     Indication: ANTIEMETIC SUPPORTIVE CARE
     Dosage: 1.8 MG/M2, UNK
     Dates: start: 20050627, end: 20050906
  9. DECADRON [Concomitant]
     Indication: ANTIEMETIC SUPPORTIVE CARE
     Dosage: 10 MG, UNK
     Dates: start: 20050502, end: 20050906
  10. MEGACE [Concomitant]
     Indication: APPETITE DISORDER
     Dosage: 40 MG/ML - 20 ML/DAY
     Dates: start: 20060221, end: 20060801
  11. DILANTIN [Concomitant]
     Indication: CONVULSION
     Dosage: 300 MG, QD
     Dates: start: 20060711, end: 20060801
  12. PERCOCET [Concomitant]
     Indication: PAIN
     Dosage: 10/325 MG
     Dates: start: 20050705, end: 20060801
  13. CATAPRES [Concomitant]
     Indication: HYPERTENSION
     Dates: start: 20060501, end: 20060801
  14. GEMZAR [Concomitant]
     Indication: RENAL CELL CARCINOMA STAGE UNSPECIFIED
     Dosage: 600 MG/M2, UNK
     Dates: start: 20060502, end: 20050906
  15. FLUOROURACIL [Concomitant]
     Indication: RENAL CELL CARCINOMA STAGE UNSPECIFIED
     Dosage: 150 MG/M2, UNK
     Dates: start: 20050502, end: 20050906
  16. AVASTIN [Concomitant]
     Indication: RENAL CELL CARCINOMA STAGE UNSPECIFIED
     Dosage: 481.8 MG, UNK
     Dates: start: 20050531, end: 20050906

REACTIONS (2)
  - MALIGNANT NEOPLASM PROGRESSION [None]
  - OSTEONECROSIS [None]
